FAERS Safety Report 5534659-2 (Version None)
Quarter: 2007Q4

REPORT INFORMATION
  Report Type: 
  Country: None (occurrence: None)
  Receive Date: 20071205
  Receipt Date: 20071128
  Transmission Date: 20080405
  Serious: Yes (Other)
  Sender: FDA-Public Use
  Company Number: US-JNJFOC-20071110990

PATIENT
  Sex: Female
  Weight: 77.11 kg

DRUGS (3)
  1. TOPAMAX [Suspect]
  2. TOPAMAX [Suspect]
     Indication: HEADACHE
  3. FIORCET [Concomitant]
     Indication: PAIN
     Route: 048

REACTIONS (1)
  - LOSS OF CONSCIOUSNESS [None]
